FAERS Safety Report 4825769-3 (Version None)
Quarter: 2005Q4

REPORT INFORMATION
  Report Type: 
  Country: None (occurrence: None)
  Receive Date: 20051109
  Receipt Date: 20051027
  Transmission Date: 20060501
  Serious: Yes (Other)
  Sender: FDA-Public Use
  Company Number: 2005008280

PATIENT
  Sex: Female
  Weight: 72.5755 kg

DRUGS (23)
  1. NEURONTIN [Suspect]
     Indication: DIABETIC NEUROPATHY
     Dosage: SEE IMAGE
     Dates: start: 20050713
  2. NEURONTIN [Suspect]
     Indication: DIABETIC NEUROPATHY
     Dosage: SEE IMAGE
     Dates: start: 20050801
  3. GABAPENTIN [Suspect]
     Indication: NEURALGIA
     Dosage: 1200 MG (600 MG, 2 IN 1 D)
     Dates: start: 20050101, end: 20050713
  4. XANAX [Suspect]
     Indication: PAIN
     Dosage: 0.5 MG
     Dates: start: 19990101
  5. MORPHINE [Suspect]
     Indication: PAIN
  6. GABAPENTIN [Suspect]
     Indication: ILL-DEFINED DISORDER
     Dosage: 2400 MG (600 MG, 4 IN 1 D)
     Dates: start: 20041208
  7. NOVOLOG [Suspect]
     Indication: DIABETES MELLITUS
  8. SINGULAIR ^MERCK^ (MOTELUKAST SODIUM) [Concomitant]
  9. UNIPHYL [Concomitant]
  10. TARKA (THEOPHYLLINE, VERAPAMIL HYDROCHLORIDE) [Concomitant]
  11. . [Concomitant]
  12. INSULIN NOVOLIN 70/30 (INSULIN HUMAN SEMSYNTHETIC, INSULIN ISOPHANE HU [Concomitant]
  13. DULOXETINE HYDROCHLROIDE (DULOXETINE HYDROCHLORIDE) [Concomitant]
  14. NORFLEX [Concomitant]
  15. FUROSEMIDE [Concomitant]
  16. MILK OF MAGNESIA TAB [Concomitant]
  17. LORTAB [Concomitant]
  18. IMDUR [Concomitant]
  19. LISINOPRIL [Concomitant]
  20. ACETYLSALICYLIC ACID SRT [Concomitant]
  21. VERAPAMIL [Concomitant]
  22. ALL OTHER THERAPEUTIC PRODUCTS (ALL OTHER THERAPEUTIC PRODUCTS) [Concomitant]
  23. NEXIUM (ESOMEPERAZOLE) [Concomitant]

REACTIONS (10)
  - ABDOMINAL PAIN UPPER [None]
  - DIFFICULTY IN WALKING [None]
  - DRUG INEFFECTIVE [None]
  - HYPOAESTHESIA [None]
  - LUNG DISORDER [None]
  - PAIN [None]
  - POST POLIO SYNDROME [None]
  - THERAPEUTIC RESPONSE UNEXPECTED WITH DRUG SUBSTITUTION [None]
  - TREMOR [None]
  - WEIGHT INCREASED [None]
